FAERS Safety Report 5123228-4 (Version None)
Quarter: 2006Q4

REPORT INFORMATION
  Report Type: 
  Country: None (occurrence: None)
  Receive Date: 20061005
  Receipt Date: 20060919
  Transmission Date: 20070319
  Serious: Yes (Other)
  Sender: FDA-Public Use
  Company Number: DE200608002846

PATIENT
  Age: 72 Year
  Sex: Female

DRUGS (10)
  1. FORTEO [Suspect]
     Dosage: 20 UG, DAILY (1/D), SUBCUTANEOUS
     Route: 058
  2. FORTEO [Concomitant]
  3. VALOPRON N /00628301/ (NALOXONE HYDROCHLORIDE, TILIDINE HYDROCHLORIDE) [Concomitant]
  4. PANTOZOL/GFR/(PANTOPRAZOLE SOIDUM) [Concomitant]
  5. RUDOTEL (MEDAZEPAM) [Concomitant]
  6. NORVASC /GRC/ (AMLODIPINE) [Concomitant]
  7. RYTMONORM/GFR/ (PROPAFENONE HYDROCHLORIDE) [Concomitant]
  8. MARCUMAR [Concomitant]
  9. EINSALPHA (ALFACALCIDOL) [Concomitant]
  10. NOVALGIN /SCH/ (METAMIZOLE SODIUM MONOHYDRATE) [Concomitant]

REACTIONS (1)
  - PROTHROMBIN TIME SHORTENED [None]
